FAERS Safety Report 7440806-8 (Version None)
Quarter: 2011Q2

REPORT INFORMATION
  Report Type: 
  Country: None (occurrence: None)
  Receive Date: 20110427
  Receipt Date: 20110421
  Transmission Date: 20111010
  Serious: Yes (Hospitalization)
  Sender: FDA-Public Use
  Company Number: US-PFIZER INC-2011061297

PATIENT
  Sex: Male
  Weight: 99.9 kg

DRUGS (10)
  1. SENNA ALEXANDRINA [Concomitant]
     Dosage: UNK
  2. IMC-3G3 [Suspect]
     Dosage: 1500 MG, UNK
     Route: 042
     Dates: start: 20110315
  3. EMEND [Concomitant]
     Dosage: UNK
  4. DEXRAZOXANE [Suspect]
     Indication: LEIOMYOSARCOMA METASTATIC
     Dosage: 1800 MG, UNK
     Route: 042
     Dates: start: 20110208
  5. OMEPRAZOLE [Concomitant]
     Dosage: UNK
  6. PEGFILGRASTIM [Concomitant]
     Dosage: UNK
     Dates: start: 20110301
  7. DOXORUBICIN HCL [Suspect]
     Indication: LEIOMYOSARCOMA METASTATIC
     Dosage: 180 MG, UNK
     Route: 042
     Dates: start: 20101116
  8. ONDANSETRON [Concomitant]
     Dosage: UNK
  9. IMC-3G3 [Suspect]
     Indication: LEIOMYOSARCOMA METASTATIC
     Dosage: 1500 MG, UNK
     Route: 042
     Dates: start: 20101116, end: 20110301
  10. LOVENOX [Concomitant]
     Dosage: UNK

REACTIONS (1)
  - FEBRILE NEUTROPENIA [None]
